FAERS Safety Report 5813919-1 (Version None)
Quarter: 2008Q3

REPORT INFORMATION
  Report Type: 
  Country: None (occurrence: None)
  Receive Date: 20080717
  Receipt Date: 20080709
  Transmission Date: 20090109
  Serious: Yes (Hospitalization, Other)
  Sender: FDA-Public Use
  Company Number: NO-WYE-H05046808

PATIENT
  Age: 66 Year
  Sex: Male

DRUGS (4)
  1. AMIODARONE HCL [Suspect]
     Indication: CARDIAC FIBRILLATION
     Route: 048
     Dates: start: 20080301
  2. ALBYL-E [Concomitant]
  3. ISOPTIN [Concomitant]
  4. MAREVAN [Concomitant]

REACTIONS (4)
  - CONDITION AGGRAVATED [None]
  - PNEUMONIA [None]
  - SKIN DISCOLOURATION [None]
  - TREMOR [None]
